FAERS Safety Report 6537843-4 (Version None)
Quarter: 2010Q1

REPORT INFORMATION
  Report Type: 
  Country: None (occurrence: None)
  Receive Date: 20100114
  Receipt Date: 20100111
  Transmission Date: 20100710
  Serious: Yes (Other)
  Sender: FDA-Public Use
  Company Number: MX-PFIZER INC-2010004331

PATIENT
  Age: 62 Year
  Sex: Male
  Weight: 90 kg

DRUGS (5)
  1. VIAGRA [Suspect]
     Indication: ERECTILE DYSFUNCTION
     Dosage: 12.5 MG, AS NEEDED
     Route: 048
     Dates: start: 20060101, end: 20091201
  2. VIAGRA [Suspect]
     Dosage: 25 MG, SINGLE
     Route: 048
     Dates: start: 20091201, end: 20091201
  3. MICARDIS HCT [Concomitant]
     Indication: HYPERTENSION
     Dosage: 80/12.5 MG, 1X/DAY
     Route: 048
     Dates: start: 20090601
  4. NORVASC [Concomitant]
     Indication: HYPERTENSION
     Dosage: 10 MG, 1X/DAY
     Route: 048
     Dates: start: 20090601
  5. ASPIRIN [Concomitant]
     Indication: PROPHYLAXIS
     Dosage: 100 MG, 1X/DAY
     Route: 048
     Dates: start: 20090601

REACTIONS (4)
  - ABNORMAL SENSATION IN EYE [None]
  - PHOTOPHOBIA [None]
  - RETINAL VEIN OCCLUSION [None]
  - VISION BLURRED [None]
